FAERS Safety Report 7860830-0 (Version None)
Quarter: 2011Q4

REPORT INFORMATION
  Report Type: 
  Country: None (occurrence: None)
  Receive Date: 20111026
  Receipt Date: 20111018
  Transmission Date: 20120403
  Serious: Yes (Hospitalization)
  Sender: FDA-Public Use
  Company Number: CIP11002731

PATIENT
  Age: 76 Year
  Sex: Female

DRUGS (2)
  1. ACTONEL [Suspect]
     Indication: OSTEOPOROSIS
     Dosage: 150MG, ORAL
     Route: 048
  2. ARIMIDEX [Concomitant]

REACTIONS (1)
  - APPENDICITIS PERFORATED [None]
